FAERS Safety Report 6428138-8 (Version None)
Quarter: 2009Q4

REPORT INFORMATION
  Report Type: 
  Country: None (occurrence: None)
  Receive Date: 20091105
  Receipt Date: 20090812
  Transmission Date: 20100525
  Serious: No
  Sender: FDA-Public Use
  Company Number: US-BAYER-200929106NA

PATIENT
  Age: 32 Year
  Sex: Female
  Weight: 85 kg

DRUGS (1)
  1. MIRENA [Suspect]
     Indication: CONTRACEPTION
     Dosage: CONTINUOUS
     Route: 015
     Dates: start: 20080708, end: 20090805

REACTIONS (4)
  - NIGHT SWEATS [None]
  - THYROID DISORDER [None]
  - UNEVALUABLE EVENT [None]
  - VULVOVAGINAL DISORDER [None]
